FAERS Safety Report 10700485 (Version 1)
Quarter: 2015Q1

REPORT INFORMATION
  Report Type: Spontaneous
  Country: US (occurrence: None)
  Receive Date: 20150108
  Receipt Date: 20150108
  Transmission Date: 20150721
  Serious: Yes (Other)
  Sender: FDA-Public Use
  Company Number: None

PATIENT
  Age: 7 Year
  Sex: Female
  Weight: 30.5 kg

DRUGS (1)
  1. SUPPRELIN LA [Suspect]
     Active Substance: HISTRELIN ACETATE
     Indication: PRECOCIOUS PUBERTY
     Route: 058
     Dates: start: 20141229

REACTIONS (5)
  - Erythema [None]
  - Urticaria [None]
  - Swelling [None]
  - Feeling hot [None]
  - Pruritus [None]

NARRATIVE: CASE EVENT DATE: 20150103
